FAERS Safety Report 21895443 (Version 1)
Quarter: 2023Q1

REPORT INFORMATION
  Report Type: Spontaneous
  Country: US (occurrence: US)
  Receive Date: 20230123
  Receipt Date: 20230123
  Transmission Date: 20230417
  Serious: Yes (Other)
  Sender: FDA-Public Use
  Company Number: US-SUN PHARMACEUTICAL INDUSTRIES LTD-2020R1-249992

PATIENT
  Age: 36 Year
  Sex: Female

DRUGS (1)
  1. ZOLPIDEM [Suspect]
     Active Substance: ZOLPIDEM TARTRATE
     Indication: Brain injury
     Dosage: 10 MILLIGRAM, DAILY
     Route: 065

REACTIONS (2)
  - Paradoxical drug reaction [Unknown]
  - Off label use [Unknown]
